FAERS Safety Report 10378168 (Version 1)
Quarter: 2014Q3

REPORT INFORMATION
  Report Type: Spontaneous
  Country: ES (occurrence: None)
  Receive Date: 20140807
  Receipt Date: 20140807
  Transmission Date: 20150326
  Serious: Yes (Other)
  Sender: FDA-Public Use
  Company Number: KAD201407-000856

PATIENT
  Age: 23 Year
  Sex: Female

DRUGS (3)
  1. INTERFERON ALFA-2B [Suspect]
     Active Substance: INTERFERON ALFA-2B
     Dosage: THREE TIMES IN A WEEK.
  2. CYCLOSPORINE. [Suspect]
     Active Substance: CYCLOSPORINE
  3. RIBAVIRIN (RIBAVIRIN) [Suspect]
     Active Substance: RIBAVIRIN

REACTIONS (2)
  - Autoimmune hepatitis [None]
  - Drug effect incomplete [None]
